FAERS Safety Report 7576422-7 (Version None)
Quarter: 2011Q2

REPORT INFORMATION
  Report Type: 
  Country: None (occurrence: None)
  Receive Date: 20110628
  Receipt Date: 20110616
  Transmission Date: 20111010
  Serious: Yes (Death, Hospitalization, Other)
  Sender: FDA-Public Use
  Company Number: US-ELI_LILLY_AND_COMPANY-US201004005823

PATIENT
  Sex: Female

DRUGS (19)
  1. SINGULAIR [Concomitant]
  2. AMBIEN [Concomitant]
     Dosage: 12.5 MG, QD
  3. ALBUTEROL SULFATE AUTOHALER [Concomitant]
  4. ASPIRIN [Concomitant]
     Dosage: 81 MG, QD
  5. ZOCOR [Concomitant]
     Dosage: 40 MG, QD
  6. ADVAIR DISKUS 100/50 [Concomitant]
     Dosage: UNK, QD
  7. COLACE [Concomitant]
  8. PROTONIX [Concomitant]
     Dosage: 40 MG, QD
  9. ZOLOFT [Concomitant]
     Dosage: 50 MG, QD
  10. FORTEO [Suspect]
     Indication: OSTEOPOROSIS
     Dosage: UNK, DAILY (1/D)
     Route: 065
     Dates: start: 20100101
  11. PREDNISONE [Concomitant]
     Dosage: 5 MG, BID
  12. MUCINEX [Concomitant]
     Dosage: 600 MG, QD
  13. FORTEO [Suspect]
     Dosage: 20 UG, DAILY (1/D)
     Route: 065
     Dates: end: 20101128
  14. PRILOSEC [Concomitant]
  15. LASIX [Concomitant]
  16. OXYGEN [Concomitant]
     Dosage: 2.5 L, UNK
     Route: 045
  17. ATIVAN [Concomitant]
     Dosage: 0.5 MG, TID
  18. ADVAIR DISKUS 100/50 [Concomitant]
     Dosage: UNK, QD
  19. INSULIN [Concomitant]

REACTIONS (11)
  - EMPHYSEMA [None]
  - CORONARY ARTERY DISEASE [None]
  - COGNITIVE DISORDER [None]
  - MEMORY IMPAIRMENT [None]
  - CHRONIC OBSTRUCTIVE PULMONARY DISEASE [None]
  - PNEUMONIA [None]
  - INCOHERENT [None]
  - ATRIAL FIBRILLATION [None]
  - MALAISE [None]
  - ACUTE MYOCARDIAL INFARCTION [None]
  - DISORIENTATION [None]
